FAERS Safety Report 23921728 (Version 3)
Quarter: 2025Q2

REPORT INFORMATION
  Report Type: Report from Study
  Country: US (occurrence: US)
  Receive Date: 20240530
  Receipt Date: 20250508
  Transmission Date: 20250717
  Serious: No
  Sender: AMGEN
  Company Number: US-AMGEN-USASP2024105464

PATIENT
  Age: 42 Year
  Sex: Female

DRUGS (1)
  1. TEPEZZA [Suspect]
     Active Substance: TEPROTUMUMAB-TRBW
     Indication: Endocrine ophthalmopathy
     Dosage: UNK, Q3WK (FIRST INFUSION)
     Route: 042
     Dates: start: 20240505

REACTIONS (7)
  - Lethargy [Unknown]
  - Myalgia [Unknown]
  - Nausea [Unknown]
  - Abdominal distension [Unknown]
  - Fatigue [Unknown]
  - Muscle spasms [Unknown]
  - Dry mouth [Unknown]

NARRATIVE: CASE EVENT DATE: 20240101
